FAERS Safety Report 18518357 (Version 1)
Quarter: 2020Q4

REPORT INFORMATION
  Report Type: Report from Study
  Country: None (occurrence: US)
  Receive Date: 20201118
  Receipt Date: 20201118
  Transmission Date: 20210114
  Serious: Yes (Life-Threatening, Hospitalization)
  Sender: FDA-Public Use
  Company Number: US-ABBVIE-20P-163-3460346-00

PATIENT
  Age: 72 Year
  Sex: Male
  Weight: 120.2 kg

DRUGS (4)
  1. IBRUTINIB [Suspect]
     Active Substance: IBRUTINIB
     Indication: CHRONIC LYMPHOCYTIC LEUKAEMIA
     Dosage: FOR 15 CYCLES
     Route: 048
     Dates: start: 20191216, end: 20200602
  2. OBINUTUZUMAB. [Concomitant]
     Active Substance: OBINUTUZUMAB
     Dosage: C1D2
     Route: 042
  3. OBINUTUZUMAB. [Concomitant]
     Active Substance: OBINUTUZUMAB
     Dosage: ON C1D8 + C1D15, C2-C6 D1
     Route: 042
  4. OBINUTUZUMAB. [Concomitant]
     Active Substance: OBINUTUZUMAB
     Indication: CHRONIC LYMPHOCYTIC LEUKAEMIA
     Dosage: C1D1
     Route: 042
     Dates: start: 20191216

REACTIONS (7)
  - Pneumonia [Recovered/Resolved]
  - Acute kidney injury [Recovered/Resolved]
  - Hypoxia [Recovered/Resolved]
  - Hypertension [Recovered/Resolved]
  - Atrial fibrillation [Recovered/Resolved]
  - Cardiac failure [Recovered/Resolved]
  - Angina pectoris [Recovered/Resolved]

NARRATIVE: CASE EVENT DATE: 20200602
